FAERS Safety Report 4932623-5 (Version None)
Quarter: 2006Q1

REPORT INFORMATION
  Report Type: 
  Country: None (occurrence: None)
  Receive Date: 20060303
  Receipt Date: 20060224
  Transmission Date: 20060701
  Serious: Yes (Hospitalization)
  Sender: FDA-Public Use
  Company Number: US-NOVOPROD-251161

PATIENT
  Age: 48 Year
  Sex: Female
  Weight: 107 kg

DRUGS (10)
  1. ALBUTEROL [Concomitant]
     Indication: ASTHMA
     Route: 055
  2. COMBIVENT                               /JOR/ [Concomitant]
     Indication: ASTHMA
     Route: 055
  3. ZYRTEC [Concomitant]
     Indication: SEASONAL ALLERGY
     Dosage: UNK, UNK
     Route: 048
  4. NOVOLOG MIX 70/30 [Suspect]
     Indication: DIABETES MELLITUS INSULIN-DEPENDENT
     Dosage: 34 IU, QD
     Route: 058
     Dates: start: 20030101, end: 20051230
  5. FLEXERIL [Concomitant]
     Indication: BACK PAIN
     Route: 048
  6. TOPAMAX [Concomitant]
     Indication: CONVULSION
     Route: 048
  7. ZIAC [Concomitant]
     Indication: HYPERTENSION
     Route: 048
  8. NORVASC [Concomitant]
     Indication: HYPERTENSION
     Route: 048
  9. ACTOS [Concomitant]
     Indication: DIABETES MELLITUS
     Route: 048
  10. ZOLOFT [Concomitant]
     Indication: DEPRESSION
     Route: 048

REACTIONS (2)
  - BLOOD GLUCOSE INCREASED [None]
  - CHEST PAIN [None]
